FAERS Safety Report 26211580 (Version 1)
Quarter: 2025Q4

REPORT INFORMATION
  Report Type: Report from Study
  Country: US (occurrence: US)
  Receive Date: 20251230
  Receipt Date: 20251230
  Transmission Date: 20260118
  Serious: Yes (Hospitalization, Other)
  Sender: GILEAD
  Company Number: US-GILEAD-2025-0742818

PATIENT
  Sex: Female

DRUGS (1)
  1. AZTREONAM LYSINE [Suspect]
     Active Substance: AZTREONAM LYSINE
     Indication: Bronchiectasis
     Dosage: INHALE 75MG VIA ALTERA NEBULIZER EVERY MORNING, AFTERNOON, + EVENING. CYCLE 28 DAYS ON + 28 DAYS OFF
     Route: 055

REACTIONS (3)
  - Pneumonia [Unknown]
  - Bronchitis [Unknown]
  - Product use in unapproved indication [Not Recovered/Not Resolved]
